FAERS Safety Report 8492886-9 (Version None)
Quarter: 2012Q3

REPORT INFORMATION
  Report Type: 
  Country: None (occurrence: None)
  Receive Date: 20120706
  Receipt Date: 20120629
  Transmission Date: 20120928
  Serious: Yes (Death)
  Sender: FDA-Public Use
  Company Number: KR-BAYER-2012-064137

PATIENT
  Age: 65 Year
  Sex: Male
  Weight: 58 kg

DRUGS (6)
  1. ASPIRIN [Suspect]
     Dosage: 100 MG, QD
     Dates: start: 20110315, end: 20110415
  2. ALDOSTERONE ANTAGONISTS [Concomitant]
     Indication: CARDIAC FAILURE CONGESTIVE
     Dosage: 25 MG, QD
     Route: 048
     Dates: start: 20110315, end: 20110415
  3. CARVEDILOL [Concomitant]
     Indication: MYOCARDIAL INFARCTION
     Dosage: 12.5 MG, BID
     Route: 048
     Dates: start: 20110315, end: 20110415
  4. LASIX [Concomitant]
     Indication: CARDIAC FAILURE CONGESTIVE
     Dosage: 20 MG, QD
     Route: 048
     Dates: start: 20110315, end: 20110415
  5. PLAVIX [Concomitant]
     Indication: MYOCARDIAL INFARCTION
     Dosage: 150 MG, QD
     Route: 048
     Dates: start: 20110315, end: 20110415
  6. ASPIRIN [Concomitant]
     Indication: MYOCARDIAL INFARCTION
     Dosage: 100 MG, QD
     Route: 048
     Dates: start: 20110315, end: 20110415

REACTIONS (1)
  - RENAL FAILURE ACUTE [None]
